FAERS Safety Report 20947459 (Version 1)
Quarter: 2022Q2

REPORT INFORMATION
  Report Type: Spontaneous
  Country: US (occurrence: US)
  Receive Date: 20220610
  Receipt Date: 20220610
  Transmission Date: 20220721
  Serious: No
  Sender: FDA-Public Use
  Company Number: US-BAXTER-2022BAX012043

PATIENT

DRUGS (4)
  1. MYXREDLIN [Suspect]
     Active Substance: INSULIN HUMAN
     Indication: Product used for unknown indication
     Dosage: UNK, RATE WENT FROM 16-19 UNITS/HR TO 29.4 UNITS PER HOUR
     Route: 065
     Dates: start: 20220527
  2. MYXREDLIN [Suspect]
     Active Substance: INSULIN HUMAN
     Dosage: UNK, RATE DECREASED TO 23 UNITS/HR
     Route: 065
     Dates: start: 20220527
  3. MYXREDLIN [Suspect]
     Active Substance: INSULIN HUMAN
     Dosage: UNK, RATE DECREASED TO 2-3 UNITS PER HOUR
     Route: 065
     Dates: start: 20220527
  4. SODIUM CHLORIDE [Suspect]
     Active Substance: SODIUM CHLORIDE
     Indication: Medication dilution
     Dosage: UNK
     Route: 065
     Dates: start: 20220527

REACTIONS (2)
  - Increased insulin requirement [Recovered/Resolved]
  - Hypoglycaemia [Unknown]

NARRATIVE: CASE EVENT DATE: 20220527
